FAERS Safety Report 6518474-9 (Version None)
Quarter: 2009Q4

REPORT INFORMATION
  Report Type: 
  Country: None (occurrence: None)
  Receive Date: 20091226
  Receipt Date: 20091215
  Transmission Date: 20100525
  Serious: Yes (Hospitalization, Other)
  Sender: FDA-Public Use
  Company Number: IT-JNJFOC-20091204839

PATIENT
  Age: 6 Year
  Sex: Female
  Weight: 20 kg

DRUGS (2)
  1. RISPERDAL [Suspect]
     Indication: DRUG ADMINISTRATION ERROR
     Route: 048
  2. EUTIROX [Concomitant]
     Indication: DRUG USE FOR UNKNOWN INDICATION
     Route: 065

REACTIONS (4)
  - ACCIDENTAL OVERDOSE [None]
  - ATAXIA [None]
  - DRUG ADMINISTRATION ERROR [None]
  - SLUGGISHNESS [None]
